FAERS Safety Report 11491863 (Version 2)
Quarter: 2016Q4

REPORT INFORMATION
  Report Type: Spontaneous
  Country: US (occurrence: US)
  Receive Date: 20150910
  Receipt Date: 20161027
  Transmission Date: 20170206
  Serious: Yes (Other)
  Sender: FDA-Public Use
  Company Number: US-ELI_LILLY_AND_COMPANY-US201509001436

PATIENT
  Sex: Female

DRUGS (9)
  1. CYMBALTA [Suspect]
     Active Substance: DULOXETINE HYDROCHLORIDE
     Indication: DEPRESSION
  2. QUETIAPINE FUMARATE. [Concomitant]
     Active Substance: QUETIAPINE FUMARATE
     Dosage: 100 MG, TID
     Route: 048
     Dates: start: 20150221
  3. BUPROPION HCL ER [Concomitant]
     Active Substance: BUPROPION HYDROCHLORIDE
     Dosage: 150 MG, BID
     Route: 048
     Dates: start: 20150123
  4. HYDROXIZINE HCL [Concomitant]
     Dosage: 50 MG, OTHER
     Dates: start: 20140426
  5. ZOLPIDEM [Concomitant]
     Active Substance: ZOLPIDEM\ZOLPIDEM TARTRATE
     Indication: SLEEP DISORDER
     Dosage: 12.5 MG, PRN
     Route: 048
     Dates: start: 20140426, end: 20140905
  6. CYMBALTA [Suspect]
     Active Substance: DULOXETINE HYDROCHLORIDE
     Indication: PAIN
     Dosage: 30 MG, EACH MORNING
     Route: 048
     Dates: start: 20140426, end: 20140905
  7. LAMOTRIGINE. [Concomitant]
     Active Substance: LAMOTRIGINE
     Dosage: 150 MG, QD
     Route: 048
     Dates: start: 20141227
  8. L-METHYLFOLATE [Concomitant]
     Dosage: 15 MG, QD
     Route: 048
     Dates: start: 20141003
  9. GABAPENTIN. [Concomitant]
     Active Substance: GABAPENTIN
     Dosage: 800 MG, TID
     Route: 048
     Dates: start: 20140426

REACTIONS (19)
  - Balance disorder [Unknown]
  - Mental impairment [Unknown]
  - Headache [Unknown]
  - Vomiting [Unknown]
  - Vertigo [Unknown]
  - Nausea [Unknown]
  - Movement disorder [Recovered/Resolved]
  - Electroencephalogram abnormal [Unknown]
  - Seizure [Unknown]
  - Dizziness [Unknown]
  - Paraesthesia [Unknown]
  - Diplopia [Unknown]
  - Visual impairment [Unknown]
  - Gait disturbance [Unknown]
  - Vision blurred [Unknown]
  - Drug withdrawal syndrome [Unknown]
  - Mood swings [Unknown]
  - Speech disorder [Unknown]
  - Tremor [Unknown]
